FAERS Safety Report 4448397-0 (Version None)
Quarter: 2004Q3

REPORT INFORMATION
  Report Type: 
  Country: None (occurrence: None)
  Receive Date: 20040730
  Receipt Date: 20040520
  Transmission Date: 20050211
  Serious: Yes (Hospitalization)
  Sender: FDA-Public Use
  Company Number: 2004-05-1676

PATIENT
  Age: 33 Year
  Sex: Female

DRUGS (1)
  1. INTRON A [Suspect]
     Dosage: 10 MIU TIW

REACTIONS (2)
  - AMENORRHOEA [None]
  - MENORRHAGIA [None]
